FAERS Safety Report 21788742 (Version 15)
Quarter: 2025Q1

REPORT INFORMATION
  Report Type: Spontaneous
  Country: US (occurrence: US)
  Receive Date: 20221228
  Receipt Date: 20250214
  Transmission Date: 20250409
  Serious: Yes (Other)
  Sender: PFIZER
  Company Number: US-PFIZER INC-202201391338

PATIENT
  Age: 68 Year
  Sex: Female
  Weight: 76.644 kg

DRUGS (8)
  1. IBRANCE [Suspect]
     Active Substance: PALBOCICLIB
     Indication: Breast cancer metastatic
  2. IBRANCE [Suspect]
     Active Substance: PALBOCICLIB
     Indication: Breast cancer female
  3. IBRANCE [Suspect]
     Active Substance: PALBOCICLIB
     Indication: Metastases to bone
     Route: 048
  4. IBRANCE [Suspect]
     Active Substance: PALBOCICLIB
     Dates: start: 20240209
  5. IBRANCE [Suspect]
     Active Substance: PALBOCICLIB
     Dates: start: 20241121
  6. IBRANCE [Suspect]
     Active Substance: PALBOCICLIB
     Dates: start: 20241219
  7. RESTASIS [Concomitant]
     Active Substance: CYCLOSPORINE
     Dates: start: 202204
  8. FULVESTRANT [Concomitant]
     Active Substance: FULVESTRANT

REACTIONS (5)
  - Neutropenia [Unknown]
  - Full blood count decreased [Recovering/Resolving]
  - Visual impairment [Unknown]
  - Off label use [Unknown]
  - Product use issue [Unknown]

NARRATIVE: CASE EVENT DATE: 20241121
